FAERS Safety Report 7801624-1 (Version None)
Quarter: 2011Q4

REPORT INFORMATION
  Report Type: 
  Country: None (occurrence: None)
  Receive Date: 20111007
  Receipt Date: 20110926
  Transmission Date: 20120403
  Serious: Yes (Other)
  Sender: FDA-Public Use
  Company Number: JP-ELI_LILLY_AND_COMPANY-JP201106006219

PATIENT
  Sex: Female
  Weight: 49 kg

DRUGS (7)
  1. OPAPROSMON [Concomitant]
     Indication: SPINAL COLUMN STENOSIS
     Dosage: 5 UG, TID
     Route: 048
     Dates: start: 20080329
  2. VALSARTAN/HYDROCHLOORTHIAZIDE [Concomitant]
     Indication: HYPERTENSION
     Dosage: 1 DF, QD
     Route: 048
     Dates: start: 20101105
  3. CALCITRIOL [Concomitant]
     Indication: OSTEOPOROSIS POSTMENOPAUSAL
     Dosage: 0.5 UG, QD
     Route: 048
  4. EVISTA [Suspect]
     Indication: OSTEOPOROSIS POSTMENOPAUSAL
     Dosage: 60 MG, QD
     Route: 048
     Dates: start: 20100623, end: 20110317
  5. KETOPROFEN [Concomitant]
     Indication: SPINAL COLUMN STENOSIS
     Dosage: 40 MG, QD
     Route: 062
  6. AMLODIPINE [Concomitant]
     Indication: HYPERTENSION
     Dosage: 2.5 MG, QD
     Route: 048
     Dates: start: 20071005
  7. GASROIL [Concomitant]
     Indication: GASTRITIS
     Dosage: 2 MG, QD
     Route: 048

REACTIONS (3)
  - AORTIC DISSECTION [None]
  - THROMBOPHLEBITIS SUPERFICIAL [None]
  - PULMONARY EMBOLISM [None]
